FAERS Safety Report 4727682-9 (Version None)
Quarter: 2005Q3

REPORT INFORMATION
  Report Type: 
  Country: None (occurrence: None)
  Receive Date: 20050725
  Receipt Date: 20050502
  Transmission Date: 20060218
  Serious: No
  Sender: FDA-Public Use
  Company Number: USA050597113

PATIENT
  Age: 49 Year
  Sex: Female

DRUGS (1)
  1. STRATTERA [Suspect]
     Dosage: 180 MG DAY

REACTIONS (1)
  - PRESCRIBED OVERDOSE [None]
